FAERS Safety Report 9369931 (Version 1)
Quarter: 2013Q2

REPORT INFORMATION
  Report Type: Spontaneous
  Country: US (occurrence: None)
  Receive Date: 20130621
  Receipt Date: 20130621
  Transmission Date: 20140414
  Serious: Yes (Life-Threatening, Other)
  Sender: FDA-Public Use
  Company Number: FK201302051

PATIENT
  Age: 17 Year
  Sex: Female

DRUGS (1)
  1. BUPIVACAINE [Suspect]
     Indication: LOCAL ANAESTHESIA

REACTIONS (5)
  - Incorrect route of drug administration [None]
  - Convulsion [None]
  - Tachycardia [None]
  - Cardio-respiratory arrest [None]
  - Toxicity to various agents [None]
